FAERS Safety Report 9422082 (Version 1)
Quarter: 2013Q4

REPORT INFORMATION
  Report Type: Spontaneous
  Country: AU (occurrence: None)
  Receive Date: 20130725
  Receipt Date: 20130725
  Transmission Date: 20140711
  Serious: Yes (Other)
  Sender: FDA-Public Use
  Company Number: None

PATIENT
  Age: 50 Year
  Sex: Female

DRUGS (12)
  1. CAFFEINE [Suspect]
  2. RITALIN [Suspect]
  3. MELATONIN (MELATONIN) [Concomitant]
  4. CLARATYNE (LORATADINE) [Concomitant]
  5. TRASTUZUMAB DM1 [Suspect]
     Indication: BREAST CANCER METASTATIC
     Route: 042
     Dates: start: 20130404
  6. CONCERTA [Suspect]
  7. XGEVA (DENOSUMAB) [Concomitant]
  8. NUROFEN COLD AND FLU (IBUPROFEN, PSEUDOEPHEDRINE) [Concomitant]
  9. ATIVAN (LORAZEPAM) [Concomitant]
  10. ASPIRIN (ACETYLSALICYLIC ACID) [Concomitant]
  11. LOVAN (FLUOXETINE HYDROCHLORIDE) [Concomitant]
  12. METFORMIN (METFORMIN) [Concomitant]

REACTIONS (1)
  - Supraventricular tachycardia [None]
